FAERS Safety Report 7006683-4 (Version None)
Quarter: 2010Q3

REPORT INFORMATION
  Report Type: 
  Country: None (occurrence: None)
  Receive Date: 20100921
  Receipt Date: 20100728
  Transmission Date: 20110219
  Serious: Yes (Hospitalization)
  Sender: FDA-Public Use
  Company Number: PHHO2010TW00492

PATIENT
  Sex: Male
  Weight: 62 kg

DRUGS (1)
  1. TASIGNA [Suspect]
     Indication: GASTROINTESTINAL STROMAL TUMOUR
     Dosage: 400 MG, BID
     Route: 048
     Dates: start: 20090930

REACTIONS (11)
  - COLON ADENOMA [None]
  - COLONIC POLYP [None]
  - DISEASE PROGRESSION [None]
  - HAEMATOCHEZIA [None]
  - HAEMORRHOIDS [None]
  - LARGE INTESTINAL ULCER [None]
  - LARGE INTESTINAL ULCER HAEMORRHAGE [None]
  - MELAENA [None]
  - OESOPHAGITIS [None]
  - SYNCOPE [None]
  - THROMBOCYTOPENIA [None]
